FAERS Safety Report 24233173 (Version 1)
Quarter: 2024Q3

REPORT INFORMATION
  Report Type: Spontaneous
  Country: CN (occurrence: CN)
  Receive Date: 20240821
  Receipt Date: 20240821
  Transmission Date: 20241016
  Serious: Yes (Hospitalization)
  Sender: PFIZER
  Company Number: CN-PFIZER INC-PV202400107368

PATIENT
  Age: 60 Year
  Sex: Male
  Weight: 65 kg

DRUGS (2)
  1. CRIZOTINIB [Suspect]
     Active Substance: CRIZOTINIB
     Indication: Neoplasm
     Dosage: 250 MG, 1X/DAY
     Route: 048
     Dates: start: 20240412, end: 20240725
  2. CRIZOTINIB [Suspect]
     Active Substance: CRIZOTINIB
     Indication: Gastric cancer

REACTIONS (15)
  - Asthenia [Recovering/Resolving]
  - Muscular weakness [Unknown]
  - Decreased appetite [Unknown]
  - Haemoglobin decreased [Not Recovered/Not Resolved]
  - Hypoproteinaemia [Recovering/Resolving]
  - Gait disturbance [Unknown]
  - Pyrexia [Recovering/Resolving]
  - Nausea [Recovering/Resolving]
  - Vomiting [Recovering/Resolving]
  - Generalised oedema [Unknown]
  - Pain [Recovering/Resolving]
  - Blood calcium decreased [Unknown]
  - Lymphocyte percentage decreased [Recovering/Resolving]
  - Neutrophil percentage increased [Not Recovered/Not Resolved]
  - Off label use [Unknown]

NARRATIVE: CASE EVENT DATE: 20240101
